FAERS Safety Report 24216453 (Version 1)
Quarter: 2024Q3

REPORT INFORMATION
  Report Type: Spontaneous
  Country: JP (occurrence: JP)
  Receive Date: 20240816
  Receipt Date: 20240816
  Transmission Date: 20241017
  Serious: Yes (Other)
  Sender: RANBAXY
  Company Number: JP-SUN PHARMACEUTICAL INDUSTRIES LTD-2024R1-462994

PATIENT
  Age: 80 Year
  Sex: Male

DRUGS (2)
  1. DOXORUBICIN [Suspect]
     Active Substance: DOXORUBICIN
     Indication: Glomus tumour
     Dosage: UNK
     Route: 065
  2. PAZOPANIB [Suspect]
     Active Substance: PAZOPANIB
     Indication: Glomus tumour
     Dosage: UNK
     Route: 065

REACTIONS (5)
  - Laryngeal infiltration [Unknown]
  - Neoplasm progression [Unknown]
  - Obstructive airways disorder [Unknown]
  - Respiratory distress [Unknown]
  - Therapeutic response decreased [Unknown]
